FAERS Safety Report 17724827 (Version 1)
Quarter: 2020Q2

REPORT INFORMATION
  Report Type: Spontaneous
  Country: DK (occurrence: DK)
  Receive Date: 20200429
  Receipt Date: 20200429
  Transmission Date: 20200714
  Serious: Yes (Hospitalization, Congenital Anomaly)
  Sender: FDA-Public Use
  Company Number: NVSC2020DK107772

PATIENT
  Sex: Male

DRUGS (2)
  1. LAMOTRIGINE. [Suspect]
     Active Substance: LAMOTRIGINE
     Indication: FOETAL EXPOSURE DURING PREGNANCY
     Dosage: MATERNAL EXPOSURE DURING PREGNANCY
     Route: 064
  2. URSOFALK [Suspect]
     Active Substance: URSODIOL
     Indication: FOETAL EXPOSURE DURING PREGNANCY
     Dosage: MATERNAL EXPOSURE DURING PREGNANCY
     Route: 064

REACTIONS (4)
  - Drug withdrawal syndrome neonatal [Recovered/Resolved]
  - Autism spectrum disorder [Not Recovered/Not Resolved]
  - Foetal exposure during pregnancy [Recovered/Resolved]
  - Muscle twitching [Unknown]

NARRATIVE: CASE EVENT DATE: 2009
